FAERS Safety Report 19226537 (Version 2)
Quarter: 2021Q3

REPORT INFORMATION
  Report Type: Spontaneous
  Country: SA (occurrence: SA)
  Receive Date: 20210506
  Receipt Date: 20210708
  Transmission Date: 20211014
  Serious: Yes (Other)
  Sender: FDA-Public Use
  Company Number: SA-GLAXOSMITHKLINE-SACH2021025775

PATIENT
  Age: 56 Year
  Sex: Female

DRUGS (2)
  1. VOLTAREN [Suspect]
     Active Substance: DICLOFENAC SODIUM
     Indication: SINUSITIS
     Dosage: 200 MG, TID (PRN)
     Route: 065
  2. IBUPROFEN, PSEUDOEPHEDRINE HCL [Suspect]
     Active Substance: IBUPROFEN\PSEUDOEPHEDRINE HYDROCHLORIDE
     Indication: SINUSITIS
     Dosage: 200 MG, TID (PRN)
     Route: 065

REACTIONS (4)
  - Flank pain [Recovered/Resolved]
  - Renal tubular necrosis [Unknown]
  - Overdose [Unknown]
  - Off label use [Unknown]
